FAERS Safety Report 16650415 (Version 2)
Quarter: 2019Q3

REPORT INFORMATION
  Report Type: Spontaneous
  Country: TR (occurrence: TR)
  Receive Date: 20190731
  Receipt Date: 20190812
  Transmission Date: 20191004
  Serious: Yes (Death, Hospitalization)
  Sender: FDA-Public Use
  Company Number: TR-TEVA-2019-TR-1083974

PATIENT
  Age: 69 Year
  Sex: Female

DRUGS (3)
  1. ATORVASTATIN [Suspect]
     Active Substance: ATORVASTATIN
     Indication: PRIMARY BILIARY CHOLANGITIS
     Route: 065
  2. DOPAMINE [Suspect]
     Active Substance: DOPAMINE HYDROCHLORIDE
     Route: 050
  3. NORADRENALINE [Suspect]
     Active Substance: NOREPINEPHRINE
     Route: 065

REACTIONS (10)
  - Pulmonary oedema [Fatal]
  - Multiple organ dysfunction syndrome [Fatal]
  - Escherichia infection [Unknown]
  - Oedema peripheral [Not Recovered/Not Resolved]
  - Cardiomyopathy [Fatal]
  - Drug ineffective [Unknown]
  - Ketoacidosis [Not Recovered/Not Resolved]
  - Rhabdomyolysis [Fatal]
  - Urosepsis [Fatal]
  - Acute kidney injury [Fatal]
